APPROVED DRUG PRODUCT: GLIPIZIDE
Active Ingredient: GLIPIZIDE
Strength: 5MG
Dosage Form/Route: TABLET;ORAL
Application: A074619 | Product #001
Applicant: BARR LABORATORIES INC
Approved: Apr 4, 1997 | RLD: No | RS: No | Type: DISCN